FAERS Safety Report 5744857-0 (Version None)
Quarter: 2008Q2

REPORT INFORMATION
  Report Type: 
  Country: None (occurrence: None)
  Receive Date: 20080516
  Receipt Date: 20080508
  Transmission Date: 20081010
  Serious: Yes (Hospitalization)
  Sender: FDA-Public Use
  Company Number: E2020-02454-CLI-JP

PATIENT
  Age: 73 Year
  Sex: Female
  Weight: 61.5 kg

DRUGS (18)
  1. DONEPEZIL HCL [Suspect]
     Indication: DEMENTIA WITH LEWY BODIES
     Dosage: DOUBLE BLIND, 1 IN 1 D, ORAL
     Route: 048
     Dates: start: 20080213, end: 20080227
  2. DONEPEZIL HCL [Suspect]
     Indication: DEMENTIA WITH LEWY BODIES
     Dosage: DOUBLE BLIND, 1 IN 1 D, ORAL
     Route: 048
     Dates: start: 20080228, end: 20080305
  3. DONEPEZIL HCL [Suspect]
     Indication: DEMENTIA WITH LEWY BODIES
     Dosage: DOUBLE BLIND, 1 IN 1 D, ORAL
     Route: 048
     Dates: start: 20080307, end: 20080310
  4. SEROQUEL [Suspect]
     Indication: DEMENTIA WITH LEWY BODIES
     Dosage: 25 MG, 1 IN 1 D, ORAL
     Route: 048
     Dates: start: 20080306, end: 20080310
  5. YOKU-KAN-SAN-KA-CHIMP-I-HANGE (HERBAL PREPARATION) [Concomitant]
  6. AMOBAN (ZOPICLONE) [Concomitant]
  7. RESLIN (TRAZODONE HYDROCHLORIDE) [Concomitant]
  8. AMARYL [Concomitant]
  9. LIVALO [Concomitant]
  10. MERCAZOLE (THIAMAZOLE) [Concomitant]
  11. FUROSEMIDE [Concomitant]
  12. SPIRONOLACTONE (SPIROLACTONE) [Concomitant]
  13. CLONAZEPAM [Concomitant]
  14. OPALMON (LIMAPROST) [Concomitant]
  15. KELNAC (PLAUNOTOL) [Concomitant]
  16. KINEDAK (EPALRESTAT) [Concomitant]
  17. L-ASPARTATE POTASSIUM (ASPARTATE POTASSIUM) [Concomitant]
  18. RABEPRAZOLE SODIUM [Concomitant]

REACTIONS (10)
  - CONDITION AGGRAVATED [None]
  - DIABETES MELLITUS [None]
  - DIABETIC NEUROPATHY [None]
  - DISSOCIATIVE FUGUE [None]
  - FALL [None]
  - HALLUCINATION, VISUAL [None]
  - HYPERKINESIA [None]
  - PAIN [None]
  - PSYCHIATRIC SYMPTOM [None]
  - RESTLESSNESS [None]
